FAERS Safety Report 18203569 (Version 1)
Quarter: 2020Q3

REPORT INFORMATION
  Report Type: Spontaneous
  Country: DE (occurrence: DE)
  Receive Date: 20200827
  Receipt Date: 20200827
  Transmission Date: 20201103
  Serious: Yes (Other)
  Sender: FDA-Public Use
  Company Number: NVSC2020DE234696

PATIENT
  Sex: Female

DRUGS (2)
  1. GEN?HYDROXYCHLOROQUINE [Suspect]
     Active Substance: HYDROXYCHLOROQUINE SULFATE
     Indication: PANCREATIC CARCINOMA METASTATIC
     Route: 065
  2. MEKINIST [Suspect]
     Active Substance: TRAMETINIB DIMETHYL SULFOXIDE
     Indication: PANCREATIC CARCINOMA METASTATIC
     Route: 065

REACTIONS (4)
  - Pancreatic carcinoma metastatic [Unknown]
  - Product use in unapproved indication [Unknown]
  - Metastases to liver [Unknown]
  - Malignant neoplasm progression [Unknown]
